FAERS Safety Report 4485004-5 (Version None)
Quarter: 2004Q3

REPORT INFORMATION
  Report Type: 
  Country: None (occurrence: None)
  Receive Date: 20040921
  Receipt Date: 20030818
  Transmission Date: 20050211
  Serious: Yes (Death, Hospitalization)
  Sender: FDA-Public Use
  Company Number: 163-20785-03080664

PATIENT
  Age: 67 Year
  Sex: Male
  Weight: 86 kg

DRUGS (2)
  1. THALOMID [Suspect]
     Indication: MULTIPLE MYELOMA
     Dosage: 200 MG, QD, ORAL
     Route: 048
     Dates: start: 20020613, end: 20030714
  2. PREDNISONE [Suspect]
     Indication: MULTIPLE MYELOMA
     Dosage: 50 MG, QOD, ORAL
     Route: 048
     Dates: start: 20020613, end: 20030714

REACTIONS (10)
  - ATRIAL FIBRILLATION [None]
  - BLOOD GLUCOSE INCREASED [None]
  - CARDIAC FAILURE CONGESTIVE [None]
  - CARDIOGENIC SHOCK [None]
  - CONDITION AGGRAVATED [None]
  - DEATH [None]
  - DYSPNOEA [None]
  - LEUKOCYTOSIS [None]
  - PNEUMONIA [None]
  - RED BLOOD CELL SEDIMENTATION RATE INCREASED [None]
